FAERS Safety Report 12074142 (Version 2)
Quarter: 2016Q1

REPORT INFORMATION
  Report Type: Spontaneous
  Country: US (occurrence: US)
  Receive Date: 20160212
  Receipt Date: 20160301
  Transmission Date: 20160526
  Serious: No
  Sender: FDA-Public Use
  Company Number: US-009507513-1602USA006502

PATIENT
  Age: 31 Year
  Sex: Female
  Weight: 83.45 kg

DRUGS (3)
  1. NEXPLANON [Suspect]
     Active Substance: ETONOGESTREL
     Indication: CONTRACEPTION
     Dosage: DOSE REPORTED AS 68MG
     Route: 059
     Dates: start: 20160111, end: 20160126
  2. NEXPLANON [Suspect]
     Active Substance: ETONOGESTREL
     Dosage: A SECOND IMPLANT
     Route: 059
     Dates: start: 20160126
  3. VITAMINS (UNSPECIFIED) [Concomitant]
     Active Substance: VITAMINS

REACTIONS (2)
  - Device expulsion [Recovered/Resolved]
  - No adverse event [Unknown]

NARRATIVE: CASE EVENT DATE: 20160125
